FAERS Safety Report 7054222-4 (Version None)
Quarter: 2010Q4

REPORT INFORMATION
  Report Type: 
  Country: None (occurrence: None)
  Receive Date: 20101020
  Receipt Date: 20101007
  Transmission Date: 20110411
  Serious: Yes (Hospitalization, Other)
  Sender: FDA-Public Use
  Company Number: PHEH2007US05535

PATIENT
  Sex: Male

DRUGS (35)
  1. AREDIA [Suspect]
  2. ZOMETA [Suspect]
  3. FOSAMAX [Suspect]
  4. TAXOTERE [Concomitant]
  5. PREDNISONE TAB [Concomitant]
  6. LUPRON [Concomitant]
  7. CASODEX [Concomitant]
  8. PROTONIX [Concomitant]
     Dosage: 40 MG, QD
  9. TERAZOSIN HCL [Concomitant]
     Dosage: 5 MG, TID
  10. METFORMIN HYDROCHLORIDE [Concomitant]
  11. GLIPIZIDE [Concomitant]
  12. CIPROFLOXACIN [Concomitant]
  13. KLOR-CON [Concomitant]
  14. ASPIRIN [Concomitant]
     Dosage: 81 MG, QD
  15. FOLIC ACID [Concomitant]
     Dosage: 400 UG, QD
  16. OXYCODONE HCL [Concomitant]
     Dosage: 80 MG, TID
  17. HYDROCODONE BITARTRATE [Concomitant]
  18. IBUPROFEN [Concomitant]
  19. GABAPENTIN [Concomitant]
  20. DEXAMETHASONE [Concomitant]
  21. BACLOFEN [Concomitant]
  22. CARISOPRODOL [Concomitant]
  23. LEXAPRO [Concomitant]
  24. LORAZEPAM [Concomitant]
  25. PROCHLORPERAZINE [Concomitant]
  26. LUNESTA [Concomitant]
  27. ADVIL [Concomitant]
  28. CINNAMON [Concomitant]
  29. PRASTERONE [Concomitant]
  30. COENZYME A [Concomitant]
     Dosage: 150 MG, TID
  31. LOTENSIN [Concomitant]
  32. HYTRIN [Concomitant]
  33. EFFEXOR [Concomitant]
  34. LIPITOR [Concomitant]
  35. MEGACE [Concomitant]

REACTIONS (68)
  - ABDOMINAL PAIN [None]
  - ALTERED STATE OF CONSCIOUSNESS [None]
  - ANAEMIA [None]
  - ANGINA UNSTABLE [None]
  - ANXIETY [None]
  - BALANCE DISORDER [None]
  - BLADDER SPASM [None]
  - BLINDNESS UNILATERAL [None]
  - BLOOD FOLATE INCREASED [None]
  - BLOOD TESTOSTERONE DECREASED [None]
  - BONE DISORDER [None]
  - BONE LESION [None]
  - BONE PAIN [None]
  - CANDIDIASIS [None]
  - CARDIAC DISORDER [None]
  - CARDIAC FAILURE CONGESTIVE [None]
  - CENTRAL NERVOUS SYSTEM LESION [None]
  - CEREBROVASCULAR ACCIDENT [None]
  - CONFUSIONAL STATE [None]
  - CONJUNCTIVAL HAEMORRHAGE [None]
  - CUSHING'S SYNDROME [None]
  - CYSTITIS [None]
  - DEHYDRATION [None]
  - DEPRESSION [None]
  - DIVERTICULUM [None]
  - FALL [None]
  - GASTROENTERITIS RADIATION [None]
  - GENITAL HERPES [None]
  - HAEMATURIA [None]
  - HAEMORRHOIDS [None]
  - HEADACHE [None]
  - HERPES ZOSTER [None]
  - HYPERHIDROSIS [None]
  - HYPOTENSION [None]
  - INCONTINENCE [None]
  - INFECTION [None]
  - INJURY [None]
  - LETHARGY [None]
  - LEUKOPENIA [None]
  - LOOSE TOOTH [None]
  - LUMBAR RADICULOPATHY [None]
  - METASTASES TO BONE [None]
  - METASTASES TO CENTRAL NERVOUS SYSTEM [None]
  - MUSCLE SPASMS [None]
  - MUSCULAR WEAKNESS [None]
  - NAUSEA [None]
  - NEUTROPENIA [None]
  - OBSTRUCTIVE UROPATHY [None]
  - OEDEMA [None]
  - OSTEONECROSIS OF JAW [None]
  - OTITIS EXTERNA [None]
  - PAIN [None]
  - PANCYTOPENIA [None]
  - PARAESTHESIA [None]
  - PERINEURIAL CYST [None]
  - POLYP [None]
  - PROSTATE CANCER [None]
  - PROSTATE CANCER METASTATIC [None]
  - PYREXIA [None]
  - RESPIRATORY DISORDER [None]
  - SEPSIS [None]
  - SPINAL OSTEOARTHRITIS [None]
  - SYNCOPE [None]
  - TOOTH EXTRACTION [None]
  - TRANSIENT ISCHAEMIC ATTACK [None]
  - UMBILICAL HERNIA [None]
  - VENOUS THROMBOSIS [None]
  - VITAMIN B12 INCREASED [None]
